FAERS Safety Report 9300402 (Version 1)
Quarter: 2013Q1

REPORT INFORMATION
  Report Type: Spontaneous
  Country: US (occurrence: None)
  Receive Date: 20121109
  Receipt Date: 20121109
  Transmission Date: 20140127
  Serious: Yes (Life-Threatening, Hospitalization)
  Sender: FDA-Public Use
  Company Number: 2011S1000808

PATIENT
  Sex: Female

DRUGS (1)
  1. CUBICIN [Suspect]

REACTIONS (1)
  - Gastrointestinal haemorrhage [None]
